FAERS Safety Report 17410710 (Version 3)
Quarter: 2020Q1

REPORT INFORMATION
  Report Type: Report from Study
  Country: US (occurrence: US)
  Receive Date: 20200212
  Receipt Date: 20200306
  Transmission Date: 20200409
  Serious: Yes (Hospitalization)
  Sender: FDA-Public Use
  Company Number: US-ARBOR PHARMACEUTICALS, LLC-US-2020ARB000113

PATIENT
  Age: 75 Year
  Sex: Male
  Weight: 69.39 kg

DRUGS (2)
  1. CARMUSTINE. [Suspect]
     Active Substance: CARMUSTINE
     Indication: GLIOBLASTOMA MULTIFORME
     Dosage: 8 WAFERS, 7.7 MG EACH, 61.6 MG TOTAL
     Dates: start: 20190411, end: 20191017
  2. CARMUSTINE. [Suspect]
     Active Substance: CARMUSTINE
     Dosage: 8 WAFERS, 7.7 MG EACH, 61.6 MG TOTAL, SINGLE
     Dates: start: 20191017, end: 20200114

REACTIONS (2)
  - Brain abscess [Recovered/Resolved]
  - Osteomyelitis [Recovered/Resolved]

NARRATIVE: CASE EVENT DATE: 20200109
